FAERS Safety Report 6496717-8 (Version None)
Quarter: 2009Q4

REPORT INFORMATION
  Report Type: 
  Country: None (occurrence: None)
  Receive Date: 20091211
  Receipt Date: 20091130
  Transmission Date: 20100525
  Serious: Yes (Other)
  Sender: FDA-Public Use
  Company Number: 2009AP004887

PATIENT
  Age: 34 Year
  Sex: Male

DRUGS (3)
  1. OXCARBAZEPINE [Suspect]
  2. TACROLIMUS [Suspect]
  3. PERPHENAZINE [Suspect]

REACTIONS (1)
  - GRANULOCYTOPENIA [None]
